FAERS Safety Report 12091049 (Version 2)
Quarter: 2016Q1

REPORT INFORMATION
  Report Type: Report from Study
  Country: US (occurrence: US)
  Receive Date: 20160218
  Receipt Date: 20160315
  Transmission Date: 20160526
  Serious: Yes (Other)
  Sender: FDA-Public Use
  Company Number: US-JNJFOC-20160112503

PATIENT
  Age: 59 Year
  Sex: Male
  Weight: 147 kg

DRUGS (4)
  1. IMBRUVICA [Suspect]
     Active Substance: IBRUTINIB
     Indication: CHRONIC LYMPHOCYTIC LEUKAEMIA
     Route: 048
     Dates: start: 20150128, end: 201601
  2. IMBRUVICA [Suspect]
     Active Substance: IBRUTINIB
     Indication: CHRONIC LYMPHOCYTIC LEUKAEMIA
     Route: 048
     Dates: start: 20160128
  3. ZYRTEC [Concomitant]
     Active Substance: CETIRIZINE HYDROCHLORIDE
  4. PEPCID [Concomitant]
     Active Substance: FAMOTIDINE

REACTIONS (6)
  - Lymphadenopathy [Unknown]
  - Blood pressure increased [Recovering/Resolving]
  - Cholelithiasis [Unknown]
  - Malaise [Recovering/Resolving]
  - Fatigue [Unknown]
  - Incision site infection [Unknown]

NARRATIVE: CASE EVENT DATE: 20151111
